FAERS Safety Report 7419091-9 (Version None)
Quarter: 2011Q2

REPORT INFORMATION
  Report Type: 
  Country: None (occurrence: None)
  Receive Date: 20110415
  Receipt Date: 20110413
  Transmission Date: 20111010
  Serious: Yes (Death, Other)
  Sender: FDA-Public Use
  Company Number: US-ASTRAZENECA-2009UW11227

PATIENT
  Age: 614 Month
  Sex: Male
  Weight: 74.8 kg

DRUGS (2)
  1. SEROQUEL [Suspect]
     Indication: BIPOLAR DISORDER
     Route: 048
     Dates: start: 20010101, end: 20070101
  2. SEROQUEL [Suspect]
     Route: 048
     Dates: start: 20070912, end: 20071101

REACTIONS (8)
  - DIABETIC KETOACIDOSIS [None]
  - EXCORIATION [None]
  - CORONARY ARTERY DISEASE [None]
  - CARDIOMEGALY [None]
  - DIABETES MELLITUS [None]
  - PULMONARY OEDEMA [None]
  - HYPOTHERMIA [None]
  - PULMONARY CONGESTION [None]
